FAERS Safety Report 19442216 (Version 1)
Quarter: 2021Q2

REPORT INFORMATION
  Report Type: Spontaneous
  Country: US (occurrence: US)
  Receive Date: 20210618
  Receipt Date: 20210618
  Transmission Date: 20210717
  Serious: Yes (Other)
  Sender: FDA-Public Use
  Company Number: None

PATIENT
  Age: 59 Year
  Sex: Female
  Weight: 76.5 kg

DRUGS (4)
  1. IRON SUPP [Concomitant]
  2. MELOXICAM 15MG [Suspect]
     Active Substance: MELOXICAM
     Indication: ARTHRITIS
     Dates: start: 20201001, end: 20201115
  3. CALCIUM SUPP [Concomitant]
  4. MULTIVITAMINS [Concomitant]
     Active Substance: VITAMINS

REACTIONS (2)
  - Headache [None]
  - Blood pressure increased [None]

NARRATIVE: CASE EVENT DATE: 20201023
